FAERS Safety Report 7526079-6 (Version None)
Quarter: 2011Q2

REPORT INFORMATION
  Report Type: 
  Country: None (occurrence: None)
  Receive Date: 20110606
  Receipt Date: 20110524
  Transmission Date: 20111010
  Serious: Yes (Hospitalization)
  Sender: FDA-Public Use
  Company Number: US-CELGENEUS-163-21880-11051150

PATIENT
  Sex: Female
  Weight: 40.497 kg

DRUGS (14)
  1. PHENERGAN HCL [Concomitant]
     Indication: VOMITING
     Route: 065
  2. FENTANYL [Concomitant]
     Dosage: 37.5 MICROGRAM
     Route: 061
  3. LORTAB [Concomitant]
     Dosage: 5/325MG-1 1/4 TABLET
     Route: 065
  4. REVLIMID [Suspect]
     Indication: MULTIPLE MYELOMA
     Dosage: 10 MILLIGRAM
     Route: 048
     Dates: start: 20101129
  5. DEXAMETHASONE [Concomitant]
     Indication: MULTIPLE MYELOMA
     Dosage: 40 MILLIGRAM
     Route: 065
  6. AREDIA [Concomitant]
     Route: 065
  7. PHENERGAN HCL [Concomitant]
     Indication: NAUSEA
     Dosage: 12.5 MILLIGRAM
     Route: 065
  8. RESTORIL [Concomitant]
     Indication: INSOMNIA
     Dosage: 15 MILLIGRAM
     Route: 048
  9. PREVACID [Concomitant]
     Dosage: 30 MILLIGRAM
     Route: 065
  10. FLUID [Concomitant]
     Indication: NAUSEA
     Route: 051
  11. REGLAN [Concomitant]
     Dosage: 5 MILLIGRAM
     Route: 048
  12. DEXAMETHASONE [Concomitant]
     Dosage: 20 MILLIGRAM
     Route: 065
     Dates: start: 20110328
  13. WARFARIN SODIUM [Concomitant]
     Dosage: 1 MILLIGRAM
     Route: 065
  14. COUMADIN [Concomitant]
     Dosage: 1 MILLIGRAM
     Route: 065

REACTIONS (2)
  - GASTRITIS [None]
  - DYSPHAGIA [None]
